FAERS Safety Report 5308162-9 (Version None)
Quarter: 2007Q2

REPORT INFORMATION
  Report Type: 
  Country: None (occurrence: None)
  Receive Date: 20070426
  Receipt Date: 20070411
  Transmission Date: 20071010
  Serious: Yes (Other)
  Sender: FDA-Public Use
  Company Number: PHEH2007US05201

PATIENT
  Sex: Female

DRUGS (1)
  1. ZELNORM [Suspect]
     Indication: CONSTIPATION
     Dosage: 6 MG, BID
     Dates: start: 20030101, end: 20070410

REACTIONS (5)
  - CARDIAC DISORDER [None]
  - CHEST PAIN [None]
  - FATIGUE [None]
  - PAIN IN EXTREMITY [None]
  - PALPITATIONS [None]
